FAERS Safety Report 21674909 (Version 1)
Quarter: 2022Q4

REPORT INFORMATION
  Report Type: Spontaneous
  Country: CN (occurrence: CN)
  Receive Date: 20221202
  Receipt Date: 20221202
  Transmission Date: 20230113
  Serious: Yes (Other)
  Sender: FDA-Public Use
  Company Number: CN-PFIZER INC-202201334268

PATIENT
  Sex: Female

DRUGS (1)
  1. ZYVOX [Suspect]
     Active Substance: LINEZOLID
     Route: 048

REACTIONS (4)
  - Cough [Unknown]
  - Condition aggravated [Unknown]
  - Prescription drug used without a prescription [Unknown]
  - Product packaging issue [Unknown]
